FAERS Safety Report 5679920-6 (Version None)
Quarter: 2008Q1

REPORT INFORMATION
  Report Type: 
  Country: None (occurrence: None)
  Receive Date: 20080324
  Receipt Date: 20080319
  Transmission Date: 20080703
  Serious: Yes (Hospitalization)
  Sender: FDA-Public Use
  Company Number: 2008SP004666

PATIENT
  Age: 61 Year
  Sex: Male

DRUGS (1)
  1. CELESTAMINE (BETAMETHASONE/DEXCHLORPHENIRAMINE MALEATE) (BETAMETHASONE [Suspect]
     Indication: DERMATITIS ALLERGIC
     Dosage: PO
     Route: 048

REACTIONS (15)
  - ABDOMINAL PAIN [None]
  - ADRENAL INSUFFICIENCY [None]
  - ALTERED STATE OF CONSCIOUSNESS [None]
  - BILE DUCT STONE [None]
  - BLOOD CORTISOL DECREASED [None]
  - BODY TEMPERATURE INCREASED [None]
  - CHOLANGITIS [None]
  - DIARRHOEA [None]
  - GOITRE [None]
  - HYPERTHYROIDISM [None]
  - MALAISE [None]
  - PLEURAL EFFUSION [None]
  - PYREXIA [None]
  - THYROTOXIC CRISIS [None]
  - WEIGHT DECREASED [None]
